FAERS Safety Report 20901945 (Version 2)
Quarter: 2022Q4

REPORT INFORMATION
  Report Type: Report from Study
  Country: US (occurrence: US)
  Receive Date: 20220601
  Receipt Date: 20221118
  Transmission Date: 20230113
  Serious: Yes (Other)
  Sender: FDA-Public Use
  Company Number: US-KYOWAKIRIN-2022BKK007788

PATIENT

DRUGS (1)
  1. CRYSVITA [Suspect]
     Active Substance: BUROSUMAB-TWZA
     Indication: Product used for unknown indication
     Dosage: UNK, 1X/4 WEEKS
     Route: 065

REACTIONS (3)
  - Pneumonia [Unknown]
  - Stenosis [Unknown]
  - Spinal operation [Unknown]

NARRATIVE: CASE EVENT DATE: 20221018
